FAERS Safety Report 13969397 (Version 1)
Quarter: 2017Q3

REPORT INFORMATION
  Report Type: Spontaneous
  Country: US (occurrence: US)
  Receive Date: 20170914
  Receipt Date: 20170914
  Transmission Date: 20171128
  Serious: Yes (Other)
  Sender: FDA-Public Use
  Company Number: US-TEVA-804890ACC

PATIENT
  Age: 49 Year
  Sex: Female
  Weight: 140.61 kg

DRUGS (1)
  1. VENLAFAXINE XR [Suspect]
     Active Substance: VENLAFAXINE HYDROCHLORIDE

REACTIONS (2)
  - Suicidal ideation [Unknown]
  - Knee operation [Unknown]

NARRATIVE: CASE EVENT DATE: 2015
